FAERS Safety Report 19062559 (Version 1)
Quarter: 2021Q1

REPORT INFORMATION
  Report Type: Spontaneous
  Country: CH (occurrence: CH)
  Receive Date: 20210326
  Receipt Date: 20210326
  Transmission Date: 20210420
  Serious: Yes (Other)
  Sender: FDA-Public Use
  Company Number: CH-SA-2021SA096586

PATIENT

DRUGS (2)
  1. DUPIXENT [Suspect]
     Active Substance: DUPILUMAB
  2. OMALIZUMAB. [Concomitant]
     Active Substance: OMALIZUMAB

REACTIONS (1)
  - Eosinophilic granulomatosis with polyangiitis [Unknown]
